FAERS Safety Report 5375525-5 (Version None)
Quarter: 2007Q2

REPORT INFORMATION
  Report Type: 
  Country: None (occurrence: None)
  Receive Date: 20070629
  Receipt Date: 20070617
  Transmission Date: 20071010
  Serious: Yes (Other)
  Sender: FDA-Public Use
  Company Number: US-PFIZER INC-2007050577

PATIENT
  Sex: Female

DRUGS (4)
  1. LIPITOR [Suspect]
     Indication: VASCULAR BYPASS GRAFT
  2. ASPIRIN [Suspect]
     Indication: VASCULAR BYPASS GRAFT
  3. PLAVIX [Concomitant]
  4. ALL OTHER THERAPEUTIC PRODUCTS [Concomitant]

REACTIONS (5)
  - DRUG INEFFECTIVE [None]
  - FEELING ABNORMAL [None]
  - HAEMORRHAGE [None]
  - STENT PLACEMENT [None]
  - STRESS [None]
